FAERS Safety Report 6246975-X (Version None)
Quarter: 2009Q2

REPORT INFORMATION
  Report Type: 
  Country: None (occurrence: None)
  Receive Date: 20090626
  Receipt Date: 20090617
  Transmission Date: 20091009
  Serious: Yes (Hospitalization)
  Sender: FDA-Public Use
  Company Number: US-AMGEN-QUU351975

PATIENT
  Sex: Male

DRUGS (2)
  1. ENBREL [Suspect]
     Indication: PSORIATIC ARTHROPATHY
     Route: 058
     Dates: start: 20020101
  2. ENBREL [Suspect]
     Indication: PSORIASIS

REACTIONS (6)
  - ASTHMA [None]
  - OEDEMA PERIPHERAL [None]
  - OXYGEN CONSUMPTION INCREASED [None]
  - PAIN IN EXTREMITY [None]
  - PNEUMONIA [None]
  - PSORIASIS [None]
